FAERS Safety Report 9526924 (Version 1)
Quarter: 2013Q1

REPORT INFORMATION
  Report Type: Spontaneous
  Country: US (occurrence: None)
  Receive Date: 20130311
  Receipt Date: 20130311
  Transmission Date: 20140127
  Serious: No
  Sender: FDA-Public Use
  Company Number: 1301USA009457

PATIENT
  Sex: 0

DRUGS (1)
  1. ZIOPTAN (TAFLUPROST) EYE DROPS, SOLUTION [Suspect]
     Route: 047

REACTIONS (2)
  - Cystoid macular oedema [None]
  - Eye operation [None]
